FAERS Safety Report 7031675-9 (Version None)
Quarter: 2010Q4

REPORT INFORMATION
  Report Type: 
  Country: None (occurrence: None)
  Receive Date: 20101001
  Receipt Date: 20100920
  Transmission Date: 20110411
  Serious: Yes (Hospitalization, Other)
  Sender: FDA-Public Use
  Company Number: 014750

PATIENT
  Sex: Female
  Weight: 88.5 kg

DRUGS (13)
  1. CIMZIA [Suspect]
     Indication: CROHN'S DISEASE
     Dosage: DOSE, SUBCUTANEOUS, 400MG 1X/MONTH; SUBCUTANEOUS
     Route: 058
     Dates: start: 20100301
  2. CIMZIA [Suspect]
     Indication: CROHN'S DISEASE
     Dosage: DOSE, SUBCUTANEOUS, 400MG 1X/MONTH; SUBCUTANEOUS
     Route: 058
     Dates: start: 20100506
  3. NORVASC [Concomitant]
  4. TOPROL-XL [Concomitant]
  5. DIOVAN [Concomitant]
  6. ADVAIR DISKUS 100/50 [Concomitant]
  7. PROVENTIL-HFA [Concomitant]
  8. NASACORT [Concomitant]
  9. IMODIUM [Concomitant]
  10. ENTOCORT EC [Concomitant]
  11. ASPIRIN [Concomitant]
  12. CALCIUM [Concomitant]
  13. VITAMIN D3 [Concomitant]

REACTIONS (11)
  - ABDOMINAL DISCOMFORT [None]
  - ABDOMINAL DISTENSION [None]
  - BLOOD PRESSURE DECREASED [None]
  - BLOOD UREA INCREASED [None]
  - DIARRHOEA [None]
  - DIVERTICULUM [None]
  - DIZZINESS [None]
  - FATIGUE [None]
  - RECTAL HAEMORRHAGE [None]
  - RED BLOOD CELL COUNT DECREASED [None]
  - WHITE BLOOD CELL COUNT INCREASED [None]
